FAERS Safety Report 8202850-2 (Version None)
Quarter: 2012Q1

REPORT INFORMATION
  Report Type: 
  Country: None (occurrence: None)
  Receive Date: 20120312
  Receipt Date: 20120312
  Transmission Date: 20120608
  Serious: Yes (Other)
  Sender: FDA-Public Use
  Company Number: None

PATIENT
  Age: 57 Year
  Sex: Female
  Weight: 72.574 kg

DRUGS (2)
  1. CITALOPRAM HYDROBROMIDE [Suspect]
     Indication: DEPRESSION
     Dosage: 40 MG
     Route: 048
     Dates: start: 20100902, end: 20120101
  2. CITOLOPRAM [Concomitant]
     Dosage: 40 MG
     Route: 048
     Dates: start: 20100902, end: 20120101

REACTIONS (4)
  - COUGH [None]
  - WEIGHT DECREASED [None]
  - NASOPHARYNGITIS [None]
  - GASTROOESOPHAGEAL REFLUX DISEASE [None]
